FAERS Safety Report 21698012 (Version 2)
Quarter: 2023Q1

REPORT INFORMATION
  Report Type: Report from Study
  Country: US (occurrence: US)
  Receive Date: 20221208
  Receipt Date: 20230324
  Transmission Date: 20230417
  Serious: No
  Sender: FDA-Public Use
  Company Number: US-ABBVIE-4221400

PATIENT
  Age: 63 Year
  Sex: Female
  Weight: 61.234 kg

DRUGS (9)
  1. HUMIRA [Suspect]
     Active Substance: ADALIMUMAB
     Indication: Hidradenitis
     Route: 048
     Dates: start: 20160720
  2. HUMIRA [Suspect]
     Active Substance: ADALIMUMAB
     Route: 058
  3. SULFAMETHOXAZOLE [Concomitant]
     Active Substance: SULFAMETHOXAZOLE
     Indication: Infection prophylaxis
  4. LOSARTAN [Concomitant]
     Active Substance: LOSARTAN
     Indication: Hypertension
  5. CORTISONE [Concomitant]
     Active Substance: CORTISONE
     Indication: Product used for unknown indication
  6. AMLODIPINE [Concomitant]
     Active Substance: AMLODIPINE BESYLATE
     Indication: Product used for unknown indication
     Dosage: 10 MG
  7. ESTRADIOL [Concomitant]
     Active Substance: ESTRADIOL
     Indication: Hormone therapy
  8. TRAMADOL [Concomitant]
     Active Substance: TRAMADOL
     Indication: Pain
  9. NORETHINDRONE [Concomitant]
     Active Substance: NORETHINDRONE
     Indication: Hormone therapy

REACTIONS (5)
  - Hidradenitis [Recovered/Resolved with Sequelae]
  - Stress [Unknown]
  - Rash papular [Recovering/Resolving]
  - Pruritus [Recovering/Resolving]
  - Drainage [Recovering/Resolving]

NARRATIVE: CASE EVENT DATE: 20230101
